FAERS Safety Report 8557505-1 (Version None)
Quarter: 2012Q3

REPORT INFORMATION
  Report Type: 
  Country: None (occurrence: None)
  Receive Date: 20120720
  Receipt Date: 20111006
  Transmission Date: 20120928
  Serious: Yes (Hospitalization, Other)
  Sender: FDA-Public Use
  Company Number: ADR-2012-01302

PATIENT
  Sex: Female

DRUGS (2)
  1. BACLOFEN [Suspect]
     Indication: SPINAL CORD INJURY
  2. BACLOFEN [Suspect]
     Indication: MUSCLE SPASTICITY

REACTIONS (3)
  - CONVULSION [None]
  - GASTROINTESTINAL DISORDER [None]
  - ENDOTRACHEAL INTUBATION COMPLICATION [None]
